FAERS Safety Report 6689787-5 (Version None)
Quarter: 2010Q2

REPORT INFORMATION
  Report Type: 
  Country: None (occurrence: None)
  Receive Date: 20100421
  Receipt Date: 20100406
  Transmission Date: 20101027
  Serious: Yes (Hospitalization)
  Sender: FDA-Public Use
  Company Number: GB-MYLANLABS-2010S1005913

PATIENT
  Age: 67 Year
  Sex: Female

DRUGS (2)
  1. FLUOXETINE [Suspect]
     Indication: DEPRESSION
  2. ONDANSETRON [Suspect]
     Indication: NAUSEA

REACTIONS (10)
  - BRAIN NATRIURETIC PEPTIDE INCREASED [None]
  - DRUG INTERACTION [None]
  - ELECTROCARDIOGRAM T WAVE INVERSION [None]
  - ELECTROLYTE DEPLETION [None]
  - EMOTIONAL DISTRESS [None]
  - LONG QT SYNDROME [None]
  - STRESS CARDIOMYOPATHY [None]
  - SYNCOPE [None]
  - TROPONIN INCREASED [None]
  - VENTRICULAR TACHYCARDIA [None]
